FAERS Safety Report 16181682 (Version 2)
Quarter: 2020Q3

REPORT INFORMATION
  Report Type: Report from Study
  Country: US (occurrence: US)
  Receive Date: 20190410
  Receipt Date: 20190419
  Transmission Date: 20201105
  Serious: Yes (Death, Life-Threatening, Hospitalization)
  Sender: FDA-Public Use
  Company Number: US-PFIZER INC-2019138713

PATIENT
  Age: 89 Year
  Sex: Male
  Weight: 79 kg

DRUGS (12)
  1. MIDODRINE [Concomitant]
     Active Substance: MIDODRINE
     Indication: ORTHOSTATIC HYPOTENSION
     Dosage: UNK
     Route: 048
     Dates: start: 20190224
  2. TALAZOPARIB. [Suspect]
     Active Substance: TALAZOPARIB
     Indication: SMALL CELL LUNG CANCER
     Dosage: 0.75 MG, DAILY
     Route: 048
     Dates: start: 20190307, end: 20190320
  3. MIRTAZAPINE. [Concomitant]
     Active Substance: MIRTAZAPINE
     Indication: DECREASED APPETITE
     Dosage: UNK
     Route: 048
     Dates: start: 20190321
  4. MAGOX [Concomitant]
     Indication: ORTHOSTATIC HYPOTENSION
     Dosage: UNK
     Route: 048
     Dates: start: 20190224
  5. WARFARIN [Concomitant]
     Active Substance: WARFARIN
     Indication: ANTICOAGULATION DRUG LEVEL THERAPEUTIC
     Dosage: UNK
     Route: 048
     Dates: start: 20180609, end: 20190326
  6. PLATELETS [Concomitant]
     Active Substance: HUMAN PLATELET, ALLOGENIC
     Indication: PLATELET COUNT DECREASED
     Dosage: UNK
     Route: 042
     Dates: start: 20190326, end: 20190326
  7. POTASSIUM CHLORIDE. [Concomitant]
     Active Substance: POTASSIUM CHLORIDE
     Indication: ORTHOSTATIC HYPOTENSION
     Dosage: UNK
     Route: 048
     Dates: start: 20190224
  8. SODIUM CHLORIDE. [Concomitant]
     Active Substance: SODIUM CHLORIDE
     Indication: HYPONATRAEMIA
     Dosage: UNK
     Route: 048
     Dates: start: 20190224
  9. ATORVASTATIN [Concomitant]
     Active Substance: ATORVASTATIN
     Indication: BLOOD CHOLESTEROL INCREASED
     Dosage: UNK
     Route: 048
     Dates: start: 20181205
  10. DIGOXIN. [Concomitant]
     Active Substance: DIGOXIN
     Indication: ATRIAL FIBRILLATION
     Dosage: UNK
     Route: 048
     Dates: start: 20190225
  11. PEPCID [Concomitant]
     Active Substance: FAMOTIDINE
     Indication: GASTROOESOPHAGEAL REFLUX DISEASE
     Dosage: UNK
     Route: 048
     Dates: start: 20181209
  12. TEMODAR [Suspect]
     Active Substance: TEMOZOLOMIDE
     Indication: SMALL CELL LUNG CANCER
     Dosage: 75 MG, DAYS 1?5
     Route: 048
     Dates: start: 20190307, end: 20190311

REACTIONS (5)
  - Neoplasm progression [Fatal]
  - Asthenia [Not Recovered/Not Resolved]
  - Hypoxia [Fatal]
  - Tachypnoea [Not Recovered/Not Resolved]
  - Fatigue [Not Recovered/Not Resolved]

NARRATIVE: CASE EVENT DATE: 20190328
